FAERS Safety Report 23907424 (Version 1)
Quarter: 2024Q2

REPORT INFORMATION
  Report Type: Report from Study
  Country: US (occurrence: US)
  Receive Date: 20240528
  Receipt Date: 20240528
  Transmission Date: 20240716
  Serious: Yes (Hospitalization)
  Sender: FDA-Public Use
  Company Number: US-HORIZON THERAPEUTICS-HZN-2024-004679

PATIENT
  Age: 2 Year
  Sex: Male

DRUGS (2)
  1. RAVICTI [Suspect]
     Active Substance: GLYCEROL PHENYLBUTYRATE
     Indication: Ornithine transcarbamoylase deficiency
     Dosage: 1.9 ML, TID
     Route: 048
     Dates: start: 20230803
  2. CITRULLINE [Concomitant]
     Active Substance: CITRULLINE
     Indication: Product used for unknown indication
     Dosage: 0.9 G, TID, BY MOUTH 3 TIMES DAILY
     Route: 048

REACTIONS (5)
  - Hyperammonaemia [Unknown]
  - Hyperammonaemia [Unknown]
  - Hyperammonaemia [Unknown]
  - Ammonia increased [Unknown]
  - Malaise [Unknown]

NARRATIVE: CASE EVENT DATE: 20240117
